FAERS Safety Report 8106716-8 (Version None)
Quarter: 2011Q4

REPORT INFORMATION
  Report Type: 
  Country: None (occurrence: None)
  Receive Date: 20111222
  Receipt Date: 20111108
  Transmission Date: 20120403
  Serious: Yes (Hospitalization)
  Sender: FDA-Public Use
  Company Number: UTC-012209

PATIENT
  Age: 68 Year
  Sex: Male
  Weight: 78.6 kg

DRUGS (5)
  1. OXYGEN (OXYGEN) [Concomitant]
  2. PLAVIX [Concomitant]
  3. REVATIO [Concomitant]
  4. DIURETICS (DIURETICS) [Concomitant]
  5. TYVASO [Suspect]
     Indication: PULMONARY ARTERIAL HYPERTENSION
     Dosage: 360 MCG (90 MCG,4 IN 1 D),INHALATION
     Route: 055
     Dates: start: 20100921

REACTIONS (1)
  - FLUID RETENTION [None]
